FAERS Safety Report 14172361 (Version 1)
Quarter: 2017Q4

REPORT INFORMATION
  Report Type: Spontaneous
  Country: US (occurrence: US)
  Receive Date: 20171107
  Receipt Date: 20171107
  Transmission Date: 20180321
  Serious: Yes (Hospitalization, Other)
  Sender: FDA-Public Use
  Company Number: None

PATIENT
  Weight: 96.75 kg

DRUGS (5)
  1. TOPROL XL [Concomitant]
     Active Substance: METOPROLOL SUCCINATE
  2. ZYRTEC [Concomitant]
     Active Substance: CETIRIZINE HYDROCHLORIDE
  3. TYLENOL [Concomitant]
     Active Substance: ACETAMINOPHEN
  4. METRONIDAZOLE. [Suspect]
     Active Substance: METRONIDAZOLE
     Indication: ABDOMINAL PAIN
     Route: 048
     Dates: start: 20171031, end: 20171104
  5. ASPIRIN. [Concomitant]
     Active Substance: ASPIRIN

REACTIONS (3)
  - Blood pressure decreased [None]
  - Alcohol interaction [None]
  - Loss of consciousness [None]

NARRATIVE: CASE EVENT DATE: 20171104
